FAERS Safety Report 26215898 (Version 1)
Quarter: 2025Q4

REPORT INFORMATION
  Report Type: Spontaneous
  Country: CN (occurrence: CN)
  Receive Date: 20251231
  Receipt Date: 20251231
  Transmission Date: 20260118
  Serious: Yes (Other)
  Sender: TERSERA THERAPEUTICS
  Company Number: CN-ASTRAZENECA-202512CHN017980CN

PATIENT

DRUGS (8)
  1. GOSERELIN [Suspect]
     Active Substance: GOSERELIN
     Indication: Breast cancer
     Dosage: 3.6 MILLIGRAM, QD
     Route: 058
     Dates: start: 20251119, end: 20251119
  2. GOSERELIN [Suspect]
     Active Substance: GOSERELIN
     Indication: Bone cancer
  3. ZOLADEX [Suspect]
     Active Substance: GOSERELIN ACETATE
     Indication: Breast cancer
     Dosage: UNK
     Route: 065
  4. ZOLADEX [Suspect]
     Active Substance: GOSERELIN ACETATE
     Indication: Bone cancer
  5. FULVESTRANT [Suspect]
     Active Substance: FULVESTRANT
     Indication: Breast cancer
     Dosage: 0.5 GRAM, QD
     Route: 030
     Dates: start: 20251119, end: 20251119
  6. FULVESTRANT [Suspect]
     Active Substance: FULVESTRANT
     Indication: Bone cancer
  7. DENOSUMAB [Suspect]
     Active Substance: DENOSUMAB
     Indication: Breast cancer
     Dosage: 120.000000 MILLIGRAM,1 TIMES 1 DAY
     Route: 058
     Dates: start: 20251119, end: 20251119
  8. DENOSUMAB [Suspect]
     Active Substance: DENOSUMAB
     Indication: Bone cancer

REACTIONS (1)
  - Myelosuppression [Unknown]

NARRATIVE: CASE EVENT DATE: 20251215
